FAERS Safety Report 13625474 (Version 1)
Quarter: 2017Q2

REPORT INFORMATION
  Report Type: Spontaneous
  Country: US (occurrence: US)
  Receive Date: 20170607
  Receipt Date: 20170607
  Transmission Date: 20170830
  Serious: Yes (Other)
  Sender: FDA-Public Use
  Company Number: None

PATIENT
  Age: 55 Year
  Sex: Female
  Weight: 54.48 kg

DRUGS (4)
  1. IBRANCE [Suspect]
     Active Substance: PALBOCICLIB
     Indication: NEOPLASM MALIGNANT
     Dosage: 75MG ONCE DAILY BY MOUTH
     Route: 048
     Dates: start: 20170215
  2. HYDROCHLOROTHIAZIDE. [Concomitant]
     Active Substance: HYDROCHLOROTHIAZIDE
  3. NORVASC [Concomitant]
     Active Substance: AMLODIPINE BESYLATE
  4. FASLODEX [Concomitant]
     Active Substance: FULVESTRANT

REACTIONS (4)
  - Gingival pain [None]
  - Back pain [None]
  - Alopecia [None]
  - Lip pain [None]

NARRATIVE: CASE EVENT DATE: 20170607
